FAERS Safety Report 23200831 (Version 3)
Quarter: 2024Q2

REPORT INFORMATION
  Report Type: Report from Study
  Country: JP (occurrence: JP)
  Receive Date: 20231118
  Receipt Date: 20240628
  Transmission Date: 20240715
  Serious: Yes (Other)
  Sender: FDA-Public Use
  Company Number: JP-ALXN-201908JPN000001JP

PATIENT
  Age: 18 Year
  Sex: Female
  Weight: 52.3 kg

DRUGS (2)
  1. STRENSIQ [Suspect]
     Active Substance: ASFOTASE ALFA
     Indication: Hypophosphatasia
     Dosage: 2 MILLIGRAM/KILOGRAM,  TWICE A WEEK
     Route: 058
     Dates: start: 20190819
  2. STRENSIQ [Suspect]
     Active Substance: ASFOTASE ALFA
     Dosage: 2 MILLIGRAM/KILOGRAM
     Route: 058
     Dates: start: 20200221

REACTIONS (3)
  - Hydronephrosis [Not Recovered/Not Resolved]
  - Gamma-glutamyltransferase decreased [Unknown]
  - Blood creatine phosphokinase increased [Unknown]

NARRATIVE: CASE EVENT DATE: 20200716
